FAERS Safety Report 24291849 (Version 1)
Quarter: 2024Q3

REPORT INFORMATION
  Report Type: Spontaneous
  Country: IT (occurrence: IT)
  Receive Date: 20240906
  Receipt Date: 20240906
  Transmission Date: 20241016
  Serious: Yes (Hospitalization)
  Sender: PFIZER
  Company Number: None

PATIENT
  Age: 23 Year
  Sex: Female

DRUGS (6)
  1. LORAZEPAM [Suspect]
     Active Substance: LORAZEPAM
     Dosage: THE PATIENT DOES NOT REMEMBER THE AMOUNT OF DOSAGE UNITS TAKEN
     Route: 048
     Dates: start: 20240829
  2. VALIUM [Suspect]
     Active Substance: DIAZEPAM
     Dosage: 10 DROP
     Route: 048
     Dates: start: 20240829
  3. VENLAFAXINE [Suspect]
     Active Substance: VENLAFAXINE HYDROCHLORIDE
     Dosage: THE PATIENT DOES NOT REMEMBER THE QUANTITY OF DOSAGE UNITS TAKEN (150 MG/TABS PACK)
     Route: 048
     Dates: start: 20240829
  4. TALOFEN [Suspect]
     Active Substance: PROMAZINE HYDROCHLORIDE
     Dosage: THE PATIENT DOES NOT REMEMBER THE AMOUNT OF DOSAGE UNITS TAKEN
     Route: 048
     Dates: start: 20240829
  5. ARIPIPRAZOLE [Suspect]
     Active Substance: ARIPIPRAZOLE
     Dosage: THE PATIENT DOES NOT REMEMBER THE AMOUNT OF DOSAGE UNITS TAKEN
     Route: 048
     Dates: start: 20240829
  6. AUGMENTIN [Concomitant]
     Active Substance: AMOXICILLIN\CLAVULANATE POTASSIUM
     Indication: Tonsillitis
     Dosage: 2 TABS
     Dates: start: 20240828

REACTIONS (5)
  - Intentional product misuse [Recovered/Resolved]
  - Intentional self-injury [Recovered/Resolved]
  - Sopor [Recovered/Resolved]
  - Apathy [Recovering/Resolving]
  - Mood swings [Recovering/Resolving]

NARRATIVE: CASE EVENT DATE: 20240829
